FAERS Safety Report 16544849 (Version 1)
Quarter: 2019Q3

REPORT INFORMATION
  Report Type: Spontaneous
  Country: US (occurrence: US)
  Receive Date: 20190709
  Receipt Date: 20190709
  Transmission Date: 20191004
  Serious: Yes (Hospitalization)
  Sender: FDA-Public Use
  Company Number: PHHY2019US157137

PATIENT
  Age: 18 Year
  Sex: Male

DRUGS (3)
  1. CLONIDINE. [Suspect]
     Active Substance: CLONIDINE
     Indication: PRODUCT USED FOR UNKNOWN INDICATION
     Dosage: 0.1 MG, TID
     Route: 065
  2. RISPERIDONE. [Suspect]
     Active Substance: RISPERIDONE
     Indication: PRADER-WILLI SYNDROME
     Dosage: 0.5 MG, TID
     Route: 048
  3. VALPROIC ACID. [Suspect]
     Active Substance: VALPROIC ACID
     Indication: PRADER-WILLI SYNDROME
     Dosage: 500 MG, UNK (EVERY AFTERNOON)
     Route: 065

REACTIONS (10)
  - Mobility decreased [Unknown]
  - Abnormal behaviour [Unknown]
  - Autonomic nervous system imbalance [Unknown]
  - Posturing [Unknown]
  - Product use in unapproved indication [Unknown]
  - Stupor [Unknown]
  - Catatonia [Unknown]
  - Mutism [Unknown]
  - Muscle rigidity [Unknown]
  - Waxy flexibility [Unknown]
